FAERS Safety Report 7369197-8 (Version None)
Quarter: 2011Q1

REPORT INFORMATION
  Report Type: 
  Country: None (occurrence: None)
  Receive Date: 20110323
  Receipt Date: 20110318
  Transmission Date: 20110831
  Serious: Yes (Hospitalization, Other)
  Sender: FDA-Public Use
  Company Number: PT-ROCHE-763922

PATIENT
  Age: 76 Year
  Sex: Male
  Weight: 77 kg

DRUGS (2)
  1. BONIVA [Suspect]
     Dosage: FORM: FILM COATED TABLET
     Route: 048
     Dates: start: 20071101, end: 20110317
  2. ACLASTA [Suspect]
     Dosage: DRUG: ACLASTA 5 MG/100 ML SOLUTION FOR INFUSION.
     Route: 065
     Dates: start: 20110105

REACTIONS (6)
  - VERTIGO [None]
  - FEMUR FRACTURE [None]
  - DEAFNESS UNILATERAL [None]
  - CAROTID ARTERY STENOSIS [None]
  - FEMORAL NECK FRACTURE [None]
  - CATARACT [None]
